FAERS Safety Report 4336251-4 (Version None)
Quarter: 2004Q2

REPORT INFORMATION
  Report Type: 
  Country: None (occurrence: None)
  Receive Date: 20040407
  Receipt Date: 20040325
  Transmission Date: 20050107
  Serious: Yes (Hospitalization)
  Sender: FDA-Public Use
  Company Number: FR_040303807

PATIENT
  Age: 41 Year
  Sex: Female

DRUGS (4)
  1. ZYPREXA [Suspect]
     Indication: SCHIZOPHRENIA
     Dosage: 15 MG/1 DAY
     Dates: start: 20010101
  2. LOXAPINE SUCCINATE [Concomitant]
  3. NEURONTIN [Concomitant]
  4. PHENOBARBITAL TAB [Concomitant]

REACTIONS (4)
  - BRAIN OEDEMA [None]
  - CONVULSION [None]
  - HYPONATRAEMIA [None]
  - POLYDIPSIA PSYCHOGENIC [None]
